FAERS Safety Report 8187341-X (Version None)
Quarter: 2012Q1

REPORT INFORMATION
  Report Type: 
  Country: None (occurrence: None)
  Receive Date: 20120302
  Receipt Date: 20120224
  Transmission Date: 20120608
  Serious: Yes (Hospitalization)
  Sender: FDA-Public Use
  Company Number: DAV-AE-MTX-12-11

PATIENT
  Age: 7 Year
  Sex: Female

DRUGS (5)
  1. METHOTREXATE [Suspect]
     Indication: ULCERATIVE KERATITIS
     Dosage: 15MG/WEEK ORALLY
     Route: 048
  2. PREDNISONE TAB [Concomitant]
  3. PREDNISOLONE ACETATE [Concomitant]
  4. ATROPINE, GATIFLOXACIN [Concomitant]
  5. DEXAMETHASONE [Concomitant]

REACTIONS (3)
  - DISEASE RECURRENCE [None]
  - PNEUMONIA [None]
  - MOUTH ULCERATION [None]
